FAERS Safety Report 12960990 (Version 1)
Quarter: 2016Q4

REPORT INFORMATION
  Report Type: Spontaneous
  Country: US (occurrence: US)
  Receive Date: 20161121
  Receipt Date: 20161121
  Transmission Date: 20170207
  Serious: No
  Sender: FDA-Public Use
  Company Number: US-BAYER-2016-209694

PATIENT
  Age: 25 Year
  Sex: Male
  Weight: 56.65 kg

DRUGS (1)
  1. ESTRADIOL. [Suspect]
     Active Substance: ESTRADIOL
     Indication: BONE DEVELOPMENT ABNORMAL
     Dosage: UNK
     Route: 062

REACTIONS (1)
  - Product use issue [None]
